FAERS Safety Report 17393302 (Version 1)
Quarter: 2020Q1

REPORT INFORMATION
  Report Type: Spontaneous
  Country: US (occurrence: US)
  Receive Date: 20200207
  Receipt Date: 20200207
  Transmission Date: 20200409
  Serious: No
  Sender: FDA-Public Use
  Company Number: US-MYLANLABS-2020M1011470

PATIENT
  Sex: Female

DRUGS (1)
  1. TORASEMIDE [Suspect]
     Active Substance: TORSEMIDE
     Indication: CARDIAC FAILURE CONGESTIVE
     Dosage: UNK
     Dates: start: 2019

REACTIONS (1)
  - Dry eye [Unknown]
